FAERS Safety Report 25243630 (Version 1)
Quarter: 2025Q2

REPORT INFORMATION
  Report Type: Other
  Country: US (occurrence: US)
  Receive Date: 20250428
  Receipt Date: 20250428
  Transmission Date: 20250717
  Serious: Yes (Life-Threatening, Hospitalization, Other)
  Sender: SPECTRA MEDICAL DEVICES, LLC
  Company Number: US-Spectra Medical Devices, LLC-2175710

PATIENT
  Age: 15 Year
  Sex: Male

DRUGS (4)
  1. LIDOCAINE HYDROCHLORIDE [Suspect]
     Active Substance: LIDOCAINE HYDROCHLORIDE
     Indication: Pain
  2. LIDOCAINE HYDROCHLORIDE [Suspect]
     Active Substance: LIDOCAINE HYDROCHLORIDE
     Indication: Erythromelalgia
  3. KETAMINE HYDROCHLORIDE [Concomitant]
     Active Substance: KETAMINE HYDROCHLORIDE
  4. MEXILETINE HCL [Concomitant]
     Active Substance: MEXILETINE HYDROCHLORIDE

REACTIONS (7)
  - Cardiogenic shock [Unknown]
  - Product use in unapproved indication [Unknown]
  - Bradycardia [Unknown]
  - Hypotension [Unknown]
  - Toxicity to various agents [Unknown]
  - Hypertonia [Unknown]
  - Mental status changes [Unknown]
